FAERS Safety Report 6152320-0 (Version None)
Quarter: 2009Q2

REPORT INFORMATION
  Report Type: 
  Country: None (occurrence: None)
  Receive Date: 20090413
  Receipt Date: 20071211
  Transmission Date: 20091009
  Serious: Yes (Hospitalization)
  Sender: FDA-Public Use
  Company Number: US-ASTRAZENECA-2007UW17211

PATIENT
  Age: 23 Year
  Sex: Male
  Weight: 93.2 kg

DRUGS (19)
  1. SEROQUEL [Suspect]
     Indication: BIPOLAR DISORDER
     Dosage: 25, 100, 200
     Route: 048
     Dates: start: 20030129, end: 20060530
  2. SEROQUEL [Suspect]
     Dosage: 25-400 MG
     Route: 048
  3. TAMSULOSIN HCL [Concomitant]
  4. BISACODYL [Concomitant]
  5. SIMVASTATIN [Concomitant]
  6. GLYBURIDE [Concomitant]
  7. LEVOTHYROXINE SODIUM [Concomitant]
  8. GABAPENTIN [Concomitant]
  9. FLUOXETINE [Concomitant]
  10. FLUDROCORTISONE [Concomitant]
  11. METFORMIN [Concomitant]
  12. METOPROLOL TARTRATE [Concomitant]
  13. ALPROSTADIL [Concomitant]
  14. FOSINOPRIL SODIUM [Concomitant]
  15. ATENOLOL [Concomitant]
  16. VIAGRA [Concomitant]
  17. ASPIRIN [Concomitant]
  18. TESTOSTERONE [Concomitant]
  19. PLAVIX [Concomitant]

REACTIONS (20)
  - ARTHRALGIA [None]
  - BRONCHITIS [None]
  - CATARACT [None]
  - CELLULITIS [None]
  - CHEST DISCOMFORT [None]
  - CHEST PAIN [None]
  - CORONARY ARTERY DISEASE [None]
  - DIZZINESS [None]
  - FOLLICULITIS [None]
  - GASTROOESOPHAGEAL REFLUX DISEASE [None]
  - HYPERCHOLESTEROLAEMIA [None]
  - HYPONATRAEMIA [None]
  - IIIRD NERVE PARALYSIS [None]
  - PERIPHERAL VASCULAR DISORDER [None]
  - PITUITARY TUMOUR BENIGN [None]
  - PROSTATE CANCER [None]
  - TOOTH ABSCESS [None]
  - TYPE 2 DIABETES MELLITUS [None]
  - ULNAR NERVE INJURY [None]
  - URINARY RETENTION [None]
